FAERS Safety Report 16274403 (Version 1)
Quarter: 2019Q2

REPORT INFORMATION
  Report Type: Spontaneous
  Country: US (occurrence: US)
  Receive Date: 20190503
  Receipt Date: 20190503
  Transmission Date: 20190711
  Serious: Yes (Hospitalization)
  Sender: FDA-Public Use
  Company Number: None

PATIENT
  Age: 73 Year
  Sex: Female
  Weight: 63.2 kg

DRUGS (2)
  1. YERVOY [Suspect]
     Active Substance: IPILIMUMAB
  2. OPDIVO [Suspect]
     Active Substance: NIVOLUMAB

REACTIONS (2)
  - Pancreatitis [None]
  - Lipase increased [None]

NARRATIVE: CASE EVENT DATE: 20190401
